FAERS Safety Report 25821369 (Version 2)
Quarter: 2025Q3

REPORT INFORMATION
  Report Type: Report from Study
  Country: US (occurrence: US)
  Receive Date: 20250919
  Receipt Date: 20250925
  Transmission Date: 20251020
  Serious: No
  Sender: SUNOVION
  Company Number: US-SMPA-2025SPA011724

PATIENT
  Age: 59 Year
  Sex: Male

DRUGS (15)
  1. ORGOVYX [Suspect]
     Active Substance: RELUGOLIX
     Indication: Prostate cancer
     Route: 048
     Dates: start: 20250904, end: 20250908
  2. ORGOVYX [Suspect]
     Active Substance: RELUGOLIX
     Route: 048
  3. AMLODIPINE [Concomitant]
     Active Substance: AMLODIPINE BESYLATE
  4. ASPIRIN [Concomitant]
     Active Substance: ASPIRIN
  5. ATORVASTATIN [Concomitant]
     Active Substance: ATORVASTATIN
  6. AZELASTINE [Concomitant]
     Active Substance: AZELASTINE
  7. BISACODYL [Concomitant]
     Active Substance: BISACODYL
  8. IRON [Concomitant]
     Active Substance: IRON
  9. MIRALAX [Concomitant]
     Active Substance: POLYETHYLENE GLYCOL 3350
  10. OLMESARTAN [Concomitant]
     Active Substance: OLMESARTAN
  11. TADALAFIL [Concomitant]
     Active Substance: TADALAFIL
  12. TRAZODONE [Concomitant]
     Active Substance: TRAZODONE HYDROCHLORIDE
  13. CYANOCOBALAMIN [Concomitant]
     Active Substance: CYANOCOBALAMIN
  14. LACTULOSE [Concomitant]
     Active Substance: LACTULOSE
  15. COLACE [Concomitant]
     Active Substance: DOCUSATE SODIUM

REACTIONS (6)
  - Toothache [Unknown]
  - Decreased appetite [Unknown]
  - Malaise [Unknown]
  - Diarrhoea [Unknown]
  - Fatigue [Unknown]
  - Inappropriate schedule of product administration [Recovered/Resolved]

NARRATIVE: CASE EVENT DATE: 20250904
